FAERS Safety Report 9552303 (Version 1)
Quarter: 2013Q3

REPORT INFORMATION
  Report Type: Spontaneous
  Country: US (occurrence: None)
  Receive Date: 20130724
  Receipt Date: 20130724
  Transmission Date: 20140515
  Serious: Yes (Other)
  Sender: FDA-Public Use
  Company Number: PHEH2013US001612

PATIENT
  Age: 58 Year
  Sex: Female

DRUGS (2)
  1. GLEEVEC (IMATINIB) TABLET, 400 MG [Suspect]
     Indication: NEOPLASM MALIGNANT
     Route: 048
     Dates: start: 20130107
  2. PHENERGAN (CEPHAELIS SPP, FLUID EXTRACT, CHLOROFORM, CITRIC ACID, DEXTROMETHORPHAN, HYDROBROMIDE, PROMETHAZINE HYDROCHLORIDE, SODIUM CITRATE, SULFOGAIACOL) [Concomitant]

REACTIONS (14)
  - Oral candidiasis [None]
  - Upper respiratory tract infection [None]
  - Pain in extremity [None]
  - Flatulence [None]
  - Vomiting [None]
  - Abdominal distension [None]
  - Abdominal discomfort [None]
  - Nausea [None]
  - Diarrhoea [None]
  - Muscle spasms [None]
  - Insomnia [None]
  - Haemoglobin decreased [None]
  - Eructation [None]
  - Bone pain [None]
